FAERS Safety Report 4697971-5 (Version None)
Quarter: 2005Q2

REPORT INFORMATION
  Report Type: 
  Country: None (occurrence: None)
  Receive Date: 20050621
  Receipt Date: 20050605
  Transmission Date: 20051028
  Serious: No
  Sender: FDA-Public Use
  Company Number: USA040772549

PATIENT
  Age: 78 Year
  Sex: Female
  Weight: 46 kg

DRUGS (2)
  1. FORTEO [Suspect]
     Indication: OSTEOPOROSIS
     Dosage: 20 UG DAY
     Dates: start: 20040608, end: 20041221
  2. BABY ASPIRN (ACETYLSALICYLIC ACID) [Concomitant]

REACTIONS (13)
  - ANXIETY [None]
  - BLOOD ALKALINE PHOSPHATASE INCREASED [None]
  - BLOOD CALCIUM INCREASED [None]
  - CONDITION AGGRAVATED [None]
  - INJECTION SITE HAEMORRHAGE [None]
  - INJECTION SITE INDURATION [None]
  - INJECTION SITE PAIN [None]
  - NEOPLASM SKIN [None]
  - NERVOUSNESS [None]
  - OSTEITIS DEFORMANS [None]
  - PHARMACEUTICAL PRODUCT COMPLAINT [None]
  - WEIGHT DECREASED [None]
  - WRONG TECHNIQUE IN DRUG USAGE PROCESS [None]
